FAERS Safety Report 13095939 (Version 3)
Quarter: 2017Q1

REPORT INFORMATION
  Report Type: Spontaneous
  Country: IT (occurrence: IT)
  Receive Date: 20170109
  Receipt Date: 20170223
  Transmission Date: 20170428
  Serious: Yes (Life-Threatening, Hospitalization, Other)
  Sender: FDA-Public Use
  Company Number: IT-MACLEODS PHARMACEUTICALS US LTD-MAC2016004167

PATIENT

DRUGS (7)
  1. DASABUVIR [Interacting]
     Active Substance: DASABUVIR
     Indication: HEPATIC CIRRHOSIS
     Dosage: UNK  (RECEIVED 3D PLUS RBV AT THE STANDARD DOSAGE FOR TREATMENT-NAIVE HCV GT1B PATIENTS)
     Route: 065
     Dates: start: 20160206, end: 20160219
  2. PARITAPREVIR [Interacting]
     Active Substance: PARITAPREVIR
     Indication: HEPATIC CIRRHOSIS
     Dosage: UNK  (RECEIVED 3D PLUS RBV AT THE STANDARD DOSAGE FOR TREATMENT-NAIVE HCV GT1B PATIENTS)
     Route: 065
     Dates: start: 20160206, end: 20160219
  3. RITONAVIR. [Interacting]
     Active Substance: RITONAVIR
     Indication: HEPATIC CIRRHOSIS
     Dosage: UNK  (RECEIVED 3D PLUS RBV AT THE STANDARD DOSAGE FOR TREATMENT-NAIVE HCV GT1B PATIENTS)
     Route: 065
     Dates: start: 20160206, end: 20160219
  4. CARVEDILOL. [Interacting]
     Active Substance: CARVEDILOL
     Indication: PRODUCT USED FOR UNKNOWN INDICATION
     Dosage: 6.25 MG, BID
     Route: 065
  5. OMBITASVIR [Interacting]
     Active Substance: OMBITASVIR
     Indication: HEPATIC CIRRHOSIS
     Dosage: UNK  (RECEIVED 3D PLUS RBV AT THE STANDARD DOSAGE FOR TREATMENT-NAIVE HCV GT1B PATIENTS)
     Route: 065
     Dates: start: 20160206, end: 20160219
  6. RIBAVIRIN. [Interacting]
     Active Substance: RIBAVIRIN
     Indication: HEPATIC CIRRHOSIS
     Dosage: UNK (RECEIVED 3D PLUS RBV AT THE STANDARD DOSAGE FOR TREATMENT-NAIVE HCV GT1B PATIENTS)
     Route: 065
     Dates: start: 20160206, end: 20160219
  7. PANTOPRAZOLE [Suspect]
     Active Substance: PANTOPRAZOLE SODIUM
     Indication: PRODUCT USED FOR UNKNOWN INDICATION
     Dosage: 40 MG, QD
     Route: 065

REACTIONS (8)
  - Drug interaction [Unknown]
  - Renal injury [Recovering/Resolving]
  - Ascites [Recovering/Resolving]
  - Jaundice [Recovering/Resolving]
  - Oedema [Recovering/Resolving]
  - Coagulopathy [Recovering/Resolving]
  - Acute hepatic failure [Recovering/Resolving]
  - Hyperbilirubinaemia [Recovering/Resolving]

NARRATIVE: CASE EVENT DATE: 20160219
